FAERS Safety Report 24905933 (Version 2)
Quarter: 2025Q2

REPORT INFORMATION
  Report Type: Report from Study
  Country: IQ (occurrence: IQ)
  Receive Date: 20250130
  Receipt Date: 20250428
  Transmission Date: 20250717
  Serious: Yes (Other)
  Sender: REGENERON
  Company Number: IQ-BAYER-2025A012478

PATIENT
  Age: 78 Year
  Sex: Female

DRUGS (1)
  1. EYLEA [Suspect]
     Active Substance: AFLIBERCEPT
     Indication: Diabetic retinal oedema
     Dosage: TAKE MORE THAN 20 DOSE, INJUCTION, MONTHLY, SOLUTION FOR INJECTION
     Route: 031
     Dates: start: 2023

REACTIONS (3)
  - Eye infection [Recovering/Resolving]
  - Eye discharge [Unknown]
  - Ocular hyperaemia [Unknown]

NARRATIVE: CASE EVENT DATE: 20250122
